FAERS Safety Report 13988141 (Version 2)
Quarter: 2017Q3

REPORT INFORMATION
  Report Type: Report from Study
  Country: CA (occurrence: CA)
  Receive Date: 20170919
  Receipt Date: 20170926
  Transmission Date: 20171128
  Serious: Yes (Hospitalization, Other)
  Sender: FDA-Public Use
  Company Number: CA-AMGEN-CANSL2017138947

PATIENT
  Age: 83 Year
  Sex: Male

DRUGS (1)
  1. REPATHA [Suspect]
     Active Substance: EVOLOCUMAB
     Indication: ARTERIOSCLEROSIS
     Dosage: 140 MG/ML
     Route: 065
     Dates: start: 20160630

REACTIONS (5)
  - Hospitalisation [Unknown]
  - Implantable defibrillator insertion [Unknown]
  - Blood electrolytes decreased [Unknown]
  - Anxiety [Unknown]
  - Back pain [Unknown]

NARRATIVE: CASE EVENT DATE: 201609
